FAERS Safety Report 10075855 (Version 2)
Quarter: 2014Q2

REPORT INFORMATION
  Report Type: Spontaneous
  Country: AR (occurrence: AR)
  Receive Date: 20140414
  Receipt Date: 20140422
  Transmission Date: 20141212
  Serious: Yes (Hospitalization)
  Sender: FDA-Public Use
  Company Number: AR-PFIZER INC-2014103352

PATIENT
  Age: 63 Year
  Sex: Female

DRUGS (1)
  1. SUTENT [Suspect]
     Indication: METASTATIC RENAL CELL CARCINOMA
     Dosage: 50 MG, DAILY (4 WEEKS ON, 2 WEEKS OFF)
     Dates: start: 20140118

REACTIONS (3)
  - Malaise [Unknown]
  - Gastrointestinal disorder [Unknown]
  - Hypertension [Unknown]
